FAERS Safety Report 13501663 (Version 1)
Quarter: 2017Q2

REPORT INFORMATION
  Report Type: Spontaneous
  Country: CN (occurrence: CN)
  Receive Date: 20170501
  Receipt Date: 20170501
  Transmission Date: 20170830
  Serious: Yes (Life-Threatening)
  Sender: FDA-Public Use
  Company Number: CN-BAXTER-2017BAX018163

PATIENT
  Age: 26 Year
  Sex: Male
  Weight: 81.5 kg

DRUGS (8)
  1. L-ASPARAGINASE (ESCHERICHIA) [Suspect]
     Active Substance: ASPARAGINASE
     Indication: T-CELL LYMPHOMA
     Route: 065
  2. GEMCITABINE [Suspect]
     Active Substance: GEMCITABINE\GEMCITABINE HYDROCHLORIDE
     Indication: T-CELL LYMPHOMA
     Route: 065
  3. CISPLATIN. [Suspect]
     Active Substance: CISPLATIN
     Indication: T-CELL LYMPHOMA
     Route: 065
  4. L-ASPARAGINASE (ESCHERICHIA) [Suspect]
     Active Substance: ASPARAGINASE
     Dosage: 38800 UNITS
     Route: 041
     Dates: start: 20161124, end: 20161124
  5. ETOPOSIDE. [Suspect]
     Active Substance: ETOPOSIDE
     Indication: T-CELL LYMPHOMA
     Route: 065
  6. 0.9% SODIUM CHLORIDE INJECTION [Suspect]
     Active Substance: SODIUM CHLORIDE
     Indication: MEDICATION DILUTION
     Dosage: SOLVENT FOR L-ASPARAGINASE (ESCHERICHIA)
     Route: 041
     Dates: start: 20161124, end: 20161124
  7. IFOSFAMIDE FOR INJECTION [Suspect]
     Active Substance: IFOSFAMIDE
     Indication: T-CELL LYMPHOMA
     Route: 065
  8. DEXAMETHASONE. [Suspect]
     Active Substance: DEXAMETHASONE
     Indication: T-CELL LYMPHOMA
     Route: 065

REACTIONS (3)
  - Urticaria [Recovering/Resolving]
  - Anaphylactic shock [Recovering/Resolving]
  - Pruritus generalised [Recovering/Resolving]

NARRATIVE: CASE EVENT DATE: 20161124
